FAERS Safety Report 25318189 (Version 1)
Quarter: 2025Q2

REPORT INFORMATION
  Report Type: Spontaneous
  Country: SG (occurrence: SG)
  Receive Date: 20250515
  Receipt Date: 20250515
  Transmission Date: 20250717
  Serious: Yes (Other)
  Sender: REGENERON
  Company Number: SG-BAYER-2025A061986

PATIENT
  Age: 73 Year
  Sex: Female

DRUGS (1)
  1. EYLEA [Suspect]
     Active Substance: AFLIBERCEPT
     Indication: Product used for unknown indication
     Route: 031

REACTIONS (1)
  - Nephrotic syndrome [Unknown]
